FAERS Safety Report 11924141 (Version 3)
Quarter: 2016Q2

REPORT INFORMATION
  Report Type: Spontaneous
  Country: US (occurrence: US)
  Receive Date: 20160118
  Receipt Date: 20160627
  Transmission Date: 20160815
  Serious: No
  Sender: FDA-Public Use
  Company Number: US-PFIZER INC-2015462658

PATIENT
  Age: 70 Year
  Sex: Female

DRUGS (2)
  1. XALKORI [Suspect]
     Active Substance: CRIZOTINIB
     Dosage: 250 MG, 2X/DAY
     Route: 048
     Dates: start: 20151125, end: 20160603
  2. XALKORI [Suspect]
     Active Substance: CRIZOTINIB
     Indication: LUNG NEOPLASM MALIGNANT
     Dosage: 250 MG, 2X/DAY
     Route: 048
     Dates: start: 20151130, end: 20151221

REACTIONS (9)
  - Lung neoplasm malignant [Unknown]
  - Somnolence [Unknown]
  - Drooling [Unknown]
  - Tremor [Unknown]
  - Nausea [Unknown]
  - Stomatitis [Unknown]
  - Disease progression [Unknown]
  - Ageusia [Unknown]
  - Vomiting [Unknown]

NARRATIVE: CASE EVENT DATE: 2015
